FAERS Safety Report 25521250 (Version 1)
Quarter: 2025Q3

REPORT INFORMATION
  Report Type: Spontaneous
  Country: US (occurrence: US)
  Receive Date: 20250705
  Receipt Date: 20250705
  Transmission Date: 20251020
  Serious: No
  Sender: GLAXOSMITHKLINE
  Company Number: US-GSK-US2025081857

PATIENT

DRUGS (2)
  1. MOMELOTINIB [Suspect]
     Active Substance: MOMELOTINIB
     Indication: Myelofibrosis
  2. MOMELOTINIB [Suspect]
     Active Substance: MOMELOTINIB
     Indication: Anaemia

REACTIONS (1)
  - Dizziness [Not Recovered/Not Resolved]
